FAERS Safety Report 22120667 (Version 1)
Quarter: 2023Q1

REPORT INFORMATION
  Report Type: Report from Study
  Country: US (occurrence: None)
  Receive Date: 20230321
  Receipt Date: 20230321
  Transmission Date: 20230418
  Serious: Yes (Death)
  Sender: FDA-Public Use
  Company Number: US-ROCHE-3313267

PATIENT

DRUGS (2)
  1. ATEZOLIZUMAB [Suspect]
     Active Substance: ATEZOLIZUMAB
     Indication: Neoplasm
     Route: 065
     Dates: start: 20170620, end: 20180123
  2. BEVACIZUMAB [Suspect]
     Active Substance: BEVACIZUMAB
     Indication: Neoplasm
     Route: 065
     Dates: start: 20170620, end: 20180123

REACTIONS (2)
  - Death [Fatal]
  - Disease progression [Unknown]

NARRATIVE: CASE EVENT DATE: 20181123
